FAERS Safety Report 17453843 (Version 2)
Quarter: 2020Q1

REPORT INFORMATION
  Report Type: Spontaneous
  Country: CA (occurrence: CA)
  Receive Date: 20200224
  Receipt Date: 20200324
  Transmission Date: 20200409
  Serious: Yes (Hospitalization, Other)
  Sender: FDA-Public Use
  Company Number: CA-ACTELION-A-US2020-200602

PATIENT
  Age: 64 Year
  Sex: Female

DRUGS (19)
  1. VOLIBRIS [Suspect]
     Active Substance: AMBRISENTAN
     Indication: PULMONARY ARTERIAL HYPERTENSION
     Dosage: UNK
     Route: 065
     Dates: start: 20200108
  2. FUROSEMIDE. [Concomitant]
     Active Substance: FUROSEMIDE
  3. POTASSIUM [Concomitant]
     Active Substance: POTASSIUM
  4. ADCIRCA [Suspect]
     Active Substance: TADALAFIL
     Indication: PULMONARY ARTERIAL HYPERTENSION
     Dosage: 40 MG
     Route: 065
     Dates: start: 20140715
  5. ACLASTA [Concomitant]
     Active Substance: ZOLEDRONIC ACID
  6. UPTRAVI [Suspect]
     Active Substance: SELEXIPAG
     Indication: PULMONARY ARTERIAL HYPERTENSION
     Dosage: 200 MCG, BID
     Route: 048
     Dates: start: 20200106, end: 20200110
  7. INSULIN [Concomitant]
     Active Substance: INSULIN NOS
  8. GAVISCON [Concomitant]
     Active Substance: ALUMINUM HYDROXIDE\MAGNESIUM CARBONATE
  9. TYLENOL [Concomitant]
     Active Substance: ACETAMINOPHEN
  10. PREDNISONE. [Concomitant]
     Active Substance: PREDNISONE
  11. METOPROLOL. [Concomitant]
     Active Substance: METOPROLOL
  12. PANTOPRAZOLE [Concomitant]
     Active Substance: PANTOPRAZOLE
  13. VITAMIN D [Concomitant]
     Active Substance: VITAMIN D NOS
  14. LANTUS [Concomitant]
     Active Substance: INSULIN GLARGINE
  15. LIPITOR [Concomitant]
     Active Substance: ATORVASTATIN CALCIUM
  16. ATOVAQUONE. [Concomitant]
     Active Substance: ATOVAQUONE
  17. XARELTO [Concomitant]
     Active Substance: RIVAROXABAN
  18. HUMALOG [Concomitant]
     Active Substance: INSULIN LISPRO
  19. CALCIUM [Concomitant]
     Active Substance: CALCIUM

REACTIONS (15)
  - Hospitalisation [Recovering/Resolving]
  - Abdominal pain upper [Recovered/Resolved]
  - Localised infection [Unknown]
  - Cellulitis [Recovered/Resolved]
  - Pyrexia [Unknown]
  - Nausea [Recovered/Resolved]
  - Headache [Recovered/Resolved]
  - Diarrhoea [Recovered/Resolved]
  - Joint swelling [Unknown]
  - Contusion [Unknown]
  - Chest pain [Unknown]
  - Vomiting [Not Recovered/Not Resolved]
  - Pain [Recovered/Resolved]
  - Depressed level of consciousness [Unknown]
  - Gait disturbance [Unknown]

NARRATIVE: CASE EVENT DATE: 202001
